FAERS Safety Report 25159188 (Version 1)
Quarter: 2025Q2

REPORT INFORMATION
  Report Type: Spontaneous
  Country: IT (occurrence: IT)
  Receive Date: 20250404
  Receipt Date: 20250404
  Transmission Date: 20250716
  Serious: No
  Sender: ALKEM
  Company Number: IT-ALKEM LABORATORIES LIMITED-IT-ALKEM-2024-06085

PATIENT
  Age: 23 Year
  Sex: Male

DRUGS (2)
  1. ARIPIPRAZOLE [Interacting]
     Active Substance: ARIPIPRAZOLE
     Indication: Borderline personality disorder
     Dosage: 29.25 MILLIGRAM, QD
     Route: 048
  2. DELORAZEPAM [Interacting]
     Active Substance: DELORAZEPAM
     Indication: Borderline personality disorder
     Route: 048

REACTIONS (2)
  - Drug interaction [Unknown]
  - Hiccups [Recovering/Resolving]
